FAERS Safety Report 9293566 (Version 1)
Quarter: 2013Q2

REPORT INFORMATION
  Report Type: Spontaneous
  Country: US (occurrence: US)
  Receive Date: 20130516
  Receipt Date: 20130516
  Transmission Date: 20140414
  Serious: No
  Sender: FDA-Public Use
  Company Number: US-009507513-1305USA008118

PATIENT
  Sex: Female

DRUGS (6)
  1. FOSAMAX [Suspect]
     Route: 048
  2. ADVIL [Concomitant]
     Dosage: TAKE 200 MG BY MOUTH EVERY 6 HOURS AS NEEDED
     Route: 048
  3. LIPITOR [Concomitant]
     Dosage: TAKE 1 TABLET BY MOUTH ONCE DAILY
     Route: 048
  4. VITAMINS (UNSPECIFIED) [Concomitant]
     Dosage: TAKE BY MOUTH TAKES EVERY THREE DAYS
     Route: 048
  5. ASCORBIC ACID [Concomitant]
     Dosage: TAKE 1 TABLET BY MOUTH AS NEEDED
     Route: 048
  6. CHOLECALCIFEROL [Concomitant]
     Dosage: TAKE 1 CAPSULE BY MOUTH TWICE DAILY
     Route: 048

REACTIONS (2)
  - Dental discomfort [Unknown]
  - Pain in jaw [Unknown]
